FAERS Safety Report 8609351-8 (Version None)
Quarter: 2012Q3

REPORT INFORMATION
  Report Type: 
  Country: None (occurrence: None)
  Receive Date: 20120821
  Receipt Date: 20120807
  Transmission Date: 20120928
  Serious: No
  Sender: FDA-Public Use
  Company Number: US-ASTRAZENECA-2011SE34353

PATIENT
  Age: 65 Year
  Sex: Female

DRUGS (6)
  1. FLUTICASONE PROPIONATE [Suspect]
     Route: 065
  2. NEXIUM [Suspect]
     Dosage: DAILY
     Route: 048
  3. PROVENTIL [Concomitant]
  4. NEXIUM [Suspect]
     Route: 048
  5. NEXIUM [Suspect]
     Dosage: TWO TIMES A DAY
     Route: 048
  6. NEXIUM [Suspect]
     Route: 048

REACTIONS (5)
  - CHRONIC OBSTRUCTIVE PULMONARY DISEASE [None]
  - THROAT IRRITATION [None]
  - INTENTIONAL DRUG MISUSE [None]
  - NAUSEA [None]
  - ABDOMINAL DISCOMFORT [None]
